FAERS Safety Report 24985965 (Version 2)
Quarter: 2025Q3

REPORT INFORMATION
  Report Type: Spontaneous
  Country: GB (occurrence: GB)
  Receive Date: 20250219
  Receipt Date: 20250717
  Transmission Date: 20251021
  Serious: Yes (Other)
  Sender: TEVA
  Company Number: GB-ELI_LILLY_AND_COMPANY-GB202501022471

PATIENT
  Age: 55 Year
  Sex: Female

DRUGS (3)
  1. RAMIPRIL [Interacting]
     Active Substance: RAMIPRIL
     Indication: Product used for unknown indication
     Route: 065
  2. NAPROXEN [Concomitant]
     Active Substance: NAPROXEN
     Indication: Product used for unknown indication
  3. MOUNJARO [Interacting]
     Active Substance: TIRZEPATIDE
     Indication: Weight control
     Route: 065
     Dates: start: 202408

REACTIONS (25)
  - Psychotic disorder [Unknown]
  - Incoherent [Unknown]
  - Irritability [Unknown]
  - Memory impairment [Unknown]
  - Personality change [Unknown]
  - Decreased appetite [Unknown]
  - Cachexia [Unknown]
  - Mood swings [Unknown]
  - Aggression [Unknown]
  - Frustration tolerance decreased [Unknown]
  - Anger [Unknown]
  - Renal pain [Unknown]
  - Back pain [Unknown]
  - Pallor [Unknown]
  - Drug interaction [Unknown]
  - Affective disorder [Unknown]
  - Depression [Unknown]
  - Drug dependence [Unknown]
  - Dehydration [Unknown]
  - Spousal abuse [Unknown]
  - Hypophagia [Unknown]
  - Anger [Unknown]
  - Impatience [Unknown]
  - Mental impairment [Unknown]
  - Abnormal loss of weight [Unknown]

NARRATIVE: CASE EVENT DATE: 20250128
